FAERS Safety Report 4958482-2 (Version None)
Quarter: 2006Q1

REPORT INFORMATION
  Report Type: 
  Country: None (occurrence: None)
  Receive Date: 20060127
  Receipt Date: 20050621
  Transmission Date: 20060701
  Serious: Yes (Death)
  Sender: FDA-Public Use
  Company Number: 05-06-1082

PATIENT
  Age: 63 Year
  Sex: Female
  Weight: 117.4816 kg

DRUGS (1)
  1. CLOZAPINE [Suspect]
     Indication: SCHIZOPHRENIA
     Dosage: 150-200MG QD, ORAL
     Route: 048
     Dates: start: 20030201, end: 20050401

REACTIONS (1)
  - UNEVALUABLE EVENT [None]
